FAERS Safety Report 7024206-0 (Version None)
Quarter: 2010Q4

REPORT INFORMATION
  Report Type: 
  Country: None (occurrence: None)
  Receive Date: 20101001
  Receipt Date: 20100923
  Transmission Date: 20110411
  Serious: Yes (Hospitalization)
  Sender: FDA-Public Use
  Company Number: PL-ROCHE-729273

PATIENT
  Age: 35 Year
  Sex: Female

DRUGS (9)
  1. FUZEON [Suspect]
     Indication: ANTIRETROVIRAL THERAPY
     Route: 065
  2. GANCICLOVIR SODIUM [Suspect]
     Indication: ANTIRETROVIRAL THERAPY
     Route: 065
  3. ZIAGEN [Suspect]
     Indication: ANTIRETROVIRAL THERAPY
     Route: 065
  4. ENCORTON [Suspect]
     Indication: ANTIRETROVIRAL THERAPY
     Dosage: DOSE REDUCE FROM 30 MG PER DAY TO 10 MG
     Route: 065
  5. APTIVUS [Concomitant]
     Indication: ANTIRETROVIRAL THERAPY
  6. LAMIVUDINE (EPIVIR HBV) [Concomitant]
     Indication: ANTIRETROVIRAL THERAPY
  7. VIREAD [Concomitant]
     Indication: ANTIRETROVIRAL THERAPY
  8. EFAVIRENZ [Concomitant]
  9. TELZIR [Concomitant]

REACTIONS (3)
  - CYTOMEGALOVIRUS CHORIORETINITIS [None]
  - IMMUNE RECONSTITUTION SYNDROME [None]
  - SKIN TOXICITY [None]
